FAERS Safety Report 7698952-X (Version None)
Quarter: 2011Q3

REPORT INFORMATION
  Report Type: 
  Country: None (occurrence: None)
  Receive Date: 20110819
  Receipt Date: 20110810
  Transmission Date: 20111222
  Serious: Yes (Other)
  Sender: FDA-Public Use
  Company Number: US-ASTRAZENECA-2011SE47862

PATIENT
  Age: 73 Year
  Sex: Female

DRUGS (4)
  1. PRILOSEC OTC [Suspect]
     Route: 048
     Dates: start: 20110729
  2. SYNTHROID [Concomitant]
  3. CYTOMEL [Concomitant]
  4. THYROID TAB [Concomitant]

REACTIONS (5)
  - ASTHENIA [None]
  - BLINDNESS [None]
  - RETINITIS PIGMENTOSA [None]
  - CONSTIPATION [None]
  - ABDOMINAL DISCOMFORT [None]
